FAERS Safety Report 20377391 (Version 1)
Quarter: 2022Q1

REPORT INFORMATION
  Report Type: Spontaneous
  Country: FR (occurrence: FR)
  Receive Date: 20220126
  Receipt Date: 20220126
  Transmission Date: 20220423
  Serious: Yes (Other)
  Sender: FDA-Public Use
  Company Number: FR-BIOVITRUM-2022FR00976

PATIENT
  Age: 21 Month

DRUGS (1)
  1. ORFADIN [Suspect]
     Active Substance: NITISINONE
     Indication: Tyrosinaemia

REACTIONS (5)
  - Renal tubular dysfunction [Unknown]
  - Alpha 1 foetoprotein decreased [Unknown]
  - Nodule [Unknown]
  - Intentional product misuse [Unknown]
  - Product availability issue [Unknown]
